FAERS Safety Report 19789909 (Version 1)
Quarter: 2021Q3

REPORT INFORMATION
  Report Type: Spontaneous
  Country: GB (occurrence: GB)
  Receive Date: 20210905
  Receipt Date: 20210905
  Transmission Date: 20211014
  Serious: Yes (Life-Threatening)
  Sender: FDA-Public Use
  Company Number: GB-TEVA-2021-GB-1947720

PATIENT
  Age: 24 Year
  Sex: Female
  Weight: 90 kg

DRUGS (6)
  1. OMEPRAZOLE. [Concomitant]
     Active Substance: OMEPRAZOLE
     Indication: ILL-DEFINED DISORDER
  2. PARACETAMOL [Concomitant]
     Active Substance: ACETAMINOPHEN
     Indication: ILL-DEFINED DISORDER
  3. GABAPENTIN. [Concomitant]
     Active Substance: GABAPENTIN
     Indication: ILL-DEFINED DISORDER
     Dosage: NORMAL DOSE WAS 200MG THREE TIMES A DAY AT HOME, I WAS GIVEN 600MG THREE TIMES A DAY INSTEAD
  4. MORPHINE [Suspect]
     Active Substance: MORPHINE
     Indication: ILL-DEFINED DISORDER
     Dosage: ABOVE 50 MG IN THE DAY
     Route: 048
     Dates: start: 20210526, end: 20210815
  5. MORPHINE [Suspect]
     Active Substance: MORPHINE
     Indication: SCIATICA
  6. NAPROXEN. [Concomitant]
     Active Substance: NAPROXEN
     Indication: ILL-DEFINED DISORDER

REACTIONS (2)
  - Medication error [Unknown]
  - Overdose [Recovered/Resolved]

NARRATIVE: CASE EVENT DATE: 20210813
